FAERS Safety Report 21672653 (Version 1)
Quarter: 2022Q4

REPORT INFORMATION
  Report Type: Report from Study
  Country: IT (occurrence: IT)
  Receive Date: 20221202
  Receipt Date: 20221202
  Transmission Date: 20230113
  Serious: Yes (Other)
  Sender: FDA-Public Use
  Company Number: IT-SA-2022SA486490

PATIENT

DRUGS (1)
  1. CAPLACIZUMAB [Suspect]
     Active Substance: CAPLACIZUMAB
     Indication: Thrombotic thrombocytopenic purpura
     Dosage: UNK

REACTIONS (3)
  - Thrombotic thrombocytopenic purpura [Unknown]
  - Condition aggravated [Unknown]
  - Rebound effect [Unknown]
